FAERS Safety Report 24464420 (Version 1)
Quarter: 2024Q4

REPORT INFORMATION
  Report Type: Report from Study
  Country: US (occurrence: US)
  Receive Date: 20241018
  Receipt Date: 20241018
  Transmission Date: 20250115
  Serious: No
  Sender: ROCHE
  Company Number: US-ROCHE-3500447

PATIENT
  Age: 45 Year
  Sex: Female

DRUGS (10)
  1. XOLAIR [Suspect]
     Active Substance: OMALIZUMAB
     Indication: Idiopathic urticaria
     Route: 058
     Dates: start: 2022, end: 202311
  2. XOLAIR [Suspect]
     Active Substance: OMALIZUMAB
     Route: 058
  3. CELLCEPT [Suspect]
     Active Substance: MYCOPHENOLATE MOFETIL
     Indication: Idiopathic urticaria
     Route: 048
  4. HYDROCORTISONE [Concomitant]
     Active Substance: HYDROCORTISONE
  5. EPIPEN [Concomitant]
     Active Substance: EPINEPHRINE
  6. SOLU-MEDROL [Concomitant]
     Active Substance: METHYLPREDNISOLONE SODIUM SUCCINATE
  7. ESCITALOPRAM [Concomitant]
     Active Substance: ESCITALOPRAM OXALATE
  8. HYDROXYCHLOROQUINE [Concomitant]
     Active Substance: HYDROXYCHLOROQUINE
  9. MONTELUKAST SODIUM [Concomitant]
     Active Substance: MONTELUKAST SODIUM
  10. PREDNISONE [Concomitant]
     Active Substance: PREDNISONE

REACTIONS (6)
  - Urticaria [Not Recovered/Not Resolved]
  - Eye swelling [Not Recovered/Not Resolved]
  - Swelling [Not Recovered/Not Resolved]
  - Pharyngeal swelling [Not Recovered/Not Resolved]
  - Off label use [Unknown]
  - Off label use [Unknown]

NARRATIVE: CASE EVENT DATE: 20220101
